FAERS Safety Report 4574189-8 (Version None)
Quarter: 2005Q1

REPORT INFORMATION
  Report Type: 
  Country: None (occurrence: None)
  Receive Date: 20050208
  Receipt Date: 20050131
  Transmission Date: 20050727
  Serious: Yes (Hospitalization)
  Sender: FDA-Public Use
  Company Number: FR-BRISTOL-MYERS SQUIBB COMPANY-12846796

PATIENT
  Age: 68 Year
  Sex: Male

DRUGS (9)
  1. FOZITEC [Suspect]
     Route: 048
     Dates: end: 20040821
  2. APROVEL TABS [Suspect]
     Route: 048
     Dates: end: 20040821
  3. ALDACTONE [Suspect]
     Route: 048
     Dates: end: 20040821
  4. AMLOR [Suspect]
     Route: 048
  5. MEDIATENSYL [Suspect]
     Route: 048
  6. TAHOR [Suspect]
     Route: 048
  7. NOVONORM [Concomitant]
     Route: 048
  8. KARDEGIC [Concomitant]
     Route: 048
  9. FLUDEX [Concomitant]
     Route: 048

REACTIONS (4)
  - HYPERKALAEMIA [None]
  - HYPONATRAEMIA [None]
  - MALAISE [None]
  - VERTIGO [None]
